FAERS Safety Report 13177497 (Version 1)
Quarter: 2017Q1

REPORT INFORMATION
  Report Type: Report from Study
  Country: US (occurrence: US)
  Receive Date: 20170201
  Receipt Date: 20170201
  Transmission Date: 20170428
  Serious: No
  Sender: FDA-Public Use
  Company Number: US-EXELIXIS-CABO-16006386

PATIENT
  Sex: Male

DRUGS (7)
  1. PANTOPRAZOLE [Concomitant]
     Active Substance: PANTOPRAZOLE SODIUM
  2. COMETRIQ [Suspect]
     Active Substance: CABOZANTINIB S-MALATE
     Indication: RENAL CANCER
     Dosage: 140 MG, QD
     Route: 048
     Dates: start: 20160303, end: 2016
  3. MIRTAZAPINE. [Concomitant]
     Active Substance: MIRTAZAPINE
  4. MELATONIN [Concomitant]
     Active Substance: MELATONIN
  5. LASIX [Concomitant]
     Active Substance: FUROSEMIDE
  6. COMETRIQ [Suspect]
     Active Substance: CABOZANTINIB S-MALATE
     Dosage: 140 MG, QD
     Route: 048
     Dates: start: 2016
  7. CLARITIN [Concomitant]
     Active Substance: LORATADINE

REACTIONS (4)
  - Dehydration [Unknown]
  - Upper respiratory tract infection [Unknown]
  - Tension [Unknown]
  - Off label use [Unknown]
